FAERS Safety Report 17572573 (Version 1)
Quarter: 2020Q1

REPORT INFORMATION
  Report Type: Spontaneous
  Country: GB (occurrence: GB)
  Receive Date: 20200323
  Receipt Date: 20200323
  Transmission Date: 20200409
  Serious: Yes (Death)
  Sender: FDA-Public Use
  Company Number: GB-ASTRAZENECA-2020SE40572

PATIENT
  Age: 71 Year
  Sex: Female

DRUGS (11)
  1. VENTOLIN [Concomitant]
     Active Substance: ALBUTEROL SULFATE
  2. CYCLIZINE [Concomitant]
     Active Substance: CYCLIZINE
  3. BROMHEXINE HYDROCHLORIDE [Concomitant]
     Active Substance: BROMHEXINE HYDROCHLORIDE
  4. DURVALUMAB. [Suspect]
     Active Substance: DURVALUMAB
     Indication: NON-SMALL CELL LUNG CANCER
     Dosage: 690.0MG UNKNOWN
     Route: 042
     Dates: start: 20200121, end: 20200204
  5. AVAMYS [Concomitant]
     Active Substance: FLUTICASONE FUROATE
  6. ORAMORPH [Concomitant]
     Active Substance: MORPHINE SULFATE
  7. CHLORPHENAMINE [Concomitant]
     Active Substance: CHLORPHENIRAMINE MALEATE
  8. HYDROCORTISONE. [Concomitant]
     Active Substance: HYDROCORTISONE
  9. OMEPRAZOLE. [Concomitant]
     Active Substance: OMEPRAZOLE
  10. FAMOTIDINE. [Concomitant]
     Active Substance: FAMOTIDINE
  11. PARACETAMOL [Concomitant]
     Active Substance: ACETAMINOPHEN

REACTIONS (1)
  - Cardiac arrest [Fatal]

NARRATIVE: CASE EVENT DATE: 20200220
